FAERS Safety Report 8895443 (Version 5)
Quarter: 2013Q3

REPORT INFORMATION
  Report Type: Spontaneous
  Country: US (occurrence: US)
  Receive Date: 20121108
  Receipt Date: 20130822
  Transmission Date: 20140515
  Serious: Yes (Other)
  Sender: FDA-Public Use
  Company Number: US-JNJFOC-20121100195

PATIENT
  Age: 69 Year
  Sex: Female
  Weight: 61.24 kg

DRUGS (13)
  1. TOPAMAX [Suspect]
     Indication: COMPLEX PARTIAL SEIZURES
     Dosage: 50 MG 4 TABLETS IN MORNING, 1 TABLET IN AFTERNOON, 4 TABLETS IN THE EVENING
     Route: 048
     Dates: start: 2012
  2. TOPAMAX [Suspect]
     Indication: COMPLEX PARTIAL SEIZURES
     Route: 048
  3. TOPAMAX [Suspect]
     Indication: COMPLEX PARTIAL SEIZURES
     Route: 048
  4. TOPAMAX [Suspect]
     Indication: COMPLEX PARTIAL SEIZURES
     Route: 048
  5. TOPAMAX [Suspect]
     Indication: COMPLEX PARTIAL SEIZURES
     Route: 048
     Dates: start: 2000
  6. TOPAMAX [Suspect]
     Indication: COMPLEX PARTIAL SEIZURES
     Route: 048
  7. TOPAMAX [Suspect]
     Indication: COMPLEX PARTIAL SEIZURES
     Dosage: ONCE IN AFTERNOON
     Route: 048
     Dates: start: 2012
  8. TOPAMAX [Suspect]
     Indication: COMPLEX PARTIAL SEIZURES
     Route: 048
     Dates: start: 2012
  9. TOPAMAX [Suspect]
     Indication: COMPLEX PARTIAL SEIZURES
     Dosage: DAILY
     Route: 048
     Dates: start: 2012
  10. TOPAMAX [Suspect]
     Indication: COMPLEX PARTIAL SEIZURES
     Route: 048
     Dates: start: 2000, end: 2004
  11. TOPIRAMATE [Suspect]
     Indication: COMPLEX PARTIAL SEIZURES
     Dosage: DAILY
     Route: 048
     Dates: end: 2012
  12. SYNTHROID [Concomitant]
     Indication: PRODUCT USED FOR UNKNOWN INDICATION
     Route: 065
  13. UNKNOWN MEDICATION [Concomitant]
     Indication: PRODUCT USED FOR UNKNOWN INDICATION
     Route: 065

REACTIONS (6)
  - Convulsion [Not Recovered/Not Resolved]
  - Ovarian cyst [Recovered/Resolved]
  - Product lot number issue [Unknown]
  - Thinking abnormal [Not Recovered/Not Resolved]
  - Feeling abnormal [Unknown]
  - Alopecia [Unknown]
